FAERS Safety Report 4942892-3 (Version None)
Quarter: 2006Q1

REPORT INFORMATION
  Report Type: 
  Country: None (occurrence: None)
  Receive Date: 20060309
  Receipt Date: 20060225
  Transmission Date: 20060701
  Serious: Yes (Death)
  Sender: FDA-Public Use
  Company Number: GXKR2006BE00948

PATIENT
  Age: 38 Year
  Sex: Female

DRUGS (10)
  1. RANITIDINE [Suspect]
     Dosage: 50 MG
  2. CEFAZOLIN (NGX) (CEFAZOLIN) [Suspect]
     Dosage: 4 G
  3. LEVOTHYROXINE SODIUM [Concomitant]
  4. PROPOFOL [Concomitant]
  5. SUFENTANIL (SUFENTANIL) [Concomitant]
  6. CISATRACURIUM (CISATRACURIUM) [Concomitant]
  7. METHYLPREDNISOLONE [Concomitant]
  8. KETOROLAC [Concomitant]
  9. ACETAMINOPHEN [Concomitant]
  10. DEXMETHASONE (DEXAMETHASONE) [Concomitant]

REACTIONS (11)
  - CARDIOGENIC SHOCK [None]
  - CYANOSIS [None]
  - DRUG HYPERSENSITIVITY [None]
  - DYSPNOEA [None]
  - EOSINOPHILIC MYOCARDITIS [None]
  - HYPOKINESIA [None]
  - JUGULAR VEIN DISTENSION [None]
  - NORMOCHROMIC NORMOCYTIC ANAEMIA [None]
  - RALES [None]
  - RESPIRATORY ARREST [None]
  - SINUS TACHYCARDIA [None]
